FAERS Safety Report 12799680 (Version 1)
Quarter: 2016Q3

REPORT INFORMATION
  Report Type: Spontaneous
  Country: JP (occurrence: JP)
  Receive Date: 20160930
  Receipt Date: 20160930
  Transmission Date: 20161109
  Serious: Yes (Other)
  Sender: FDA-Public Use
  Company Number: JP-PFIZER INC-2016321287

PATIENT
  Age: 68 Year
  Sex: Male
  Weight: 65 kg

DRUGS (4)
  1. LENVIMA [Concomitant]
     Active Substance: LENVATINIB
     Dosage: UNK
  2. TRAMAL [Suspect]
     Active Substance: TRAMADOL
     Indication: PAIN
     Dosage: 100 MG, DAILY
     Route: 048
     Dates: start: 20160623, end: 20160623
  3. LYRICA [Suspect]
     Active Substance: PREGABALIN
     Dosage: 100 MG, 2X/DAY
     Route: 048
     Dates: start: 20160621
  4. TRAMAL [Suspect]
     Active Substance: TRAMADOL
     Dosage: 200 MG, DAILY
     Route: 048
     Dates: start: 20160624, end: 20160627

REACTIONS (4)
  - Serotonin syndrome [Recovered/Resolved]
  - Extrapyramidal disorder [Recovering/Resolving]
  - Somnolence [Unknown]
  - Pyrexia [Recovered/Resolved]

NARRATIVE: CASE EVENT DATE: 20160622
